FAERS Safety Report 9272432 (Version 1)
Quarter: 2013Q2

REPORT INFORMATION
  Report Type: Spontaneous
  Country: US (occurrence: US)
  Receive Date: 20130506
  Receipt Date: 20130506
  Transmission Date: 20140414
  Serious: No
  Sender: FDA-Public Use
  Company Number: US-ASTRAZENECA-2013SE00676

PATIENT
  Age: 55 Year
  Sex: Female
  Weight: 113.4 kg

DRUGS (6)
  1. PRILOSEC OTC [Suspect]
     Indication: GASTROOESOPHAGEAL REFLUX DISEASE
     Route: 048
     Dates: start: 20120910, end: 20120917
  2. ATENOLOL [Concomitant]
     Indication: HYPERTENSION
  3. FUROSEMIDE [Concomitant]
     Indication: HYPERTENSION
     Route: 048
  4. ELAVIL [Concomitant]
     Indication: FIBROMYALGIA
     Route: 048
  5. ULTRAM [Concomitant]
     Indication: PAIN
     Route: 048
  6. ULTRAM [Concomitant]
     Indication: FIBROMYALGIA
     Route: 048

REACTIONS (5)
  - Hiatus hernia [Recovering/Resolving]
  - Gastrooesophageal reflux disease [Recovering/Resolving]
  - Condition aggravated [Recovering/Resolving]
  - Vomiting [Recovered/Resolved]
  - Off label use [Unknown]
